FAERS Safety Report 4591590-7 (Version None)
Quarter: 2005Q1

REPORT INFORMATION
  Report Type: 
  Country: None (occurrence: None)
  Receive Date: 20050223
  Receipt Date: 20050217
  Transmission Date: 20050727
  Serious: Yes (Other)
  Sender: FDA-Public Use
  Company Number: 004188

PATIENT
  Sex: Female

DRUGS (4)
  1. MEDROXYPROGESTERONE ACETATE [Suspect]
     Dates: start: 19920101
  2. PREMARIN [Suspect]
     Dates: start: 19920101
  3. PROVERA [Suspect]
     Dates: start: 19920101
  4. PREMPRO [Suspect]
     Dates: start: 19920101

REACTIONS (1)
  - BREAST CANCER FEMALE [None]
